FAERS Safety Report 7106129-1 (Version None)
Quarter: 2010Q4

REPORT INFORMATION
  Report Type: 
  Country: None (occurrence: None)
  Receive Date: 20101116
  Receipt Date: 20101112
  Transmission Date: 20110411
  Serious: Yes (Life-Threatening, Hospitalization, Other)
  Sender: FDA-Public Use
  Company Number: A0891472A

PATIENT
  Age: 73 Year
  Sex: Female
  Weight: 58.9 kg

DRUGS (4)
  1. OFATUMUMAB [Suspect]
     Indication: B-CELL LYMPHOMA
     Dosage: 3300MG CUMULATIVE DOSE
     Route: 042
     Dates: start: 20080407
  2. AMLODIPINE [Concomitant]
     Dosage: 5MG PER DAY
     Route: 048
  3. CITALOPRAM HYDROBROMIDE [Concomitant]
     Dosage: 10MG IN THE MORNING
     Route: 048
  4. LYRICA [Concomitant]
     Route: 048

REACTIONS (6)
  - CONVULSION [None]
  - MENTAL STATUS CHANGES [None]
  - MUSCLE TWITCHING [None]
  - PROGRESSIVE MULTIFOCAL LEUKOENCEPHALOPATHY [None]
  - PYREXIA [None]
  - URINARY TRACT INFECTION [None]
